FAERS Safety Report 14613799 (Version 3)
Quarter: 2018Q3

REPORT INFORMATION
  Report Type: Spontaneous
  Country: US (occurrence: US)
  Receive Date: 20180308
  Receipt Date: 20180807
  Transmission Date: 20181010
  Serious: Yes (Congenital Anomaly, Other)
  Sender: FDA-Public Use
  Company Number: PHEH2018US008743

PATIENT
  Sex: Male

DRUGS (1)
  1. ZOFRAN ODT [Suspect]
     Active Substance: ONDANSETRON HYDROCHLORIDE
     Indication: FOETAL EXPOSURE DURING PREGNANCY
     Route: 064

REACTIONS (10)
  - Pulmonary valve stenosis [Unknown]
  - Foetal exposure during pregnancy [Unknown]
  - Pulmonary artery stenosis congenital [Unknown]
  - Congenital aortic valve incompetence [Unknown]
  - Injury [Unknown]
  - Atrial septal defect [Unknown]
  - Congenital aortic stenosis [Unknown]
  - Animal bite [Unknown]
  - Laceration [Unknown]
  - Heart disease congenital [Unknown]
